FAERS Safety Report 20993492 (Version 1)
Quarter: 2022Q2

REPORT INFORMATION
  Report Type: Spontaneous
  Country: DE (occurrence: DE)
  Receive Date: 20220622
  Receipt Date: 20220622
  Transmission Date: 20220720
  Serious: Yes (Other)
  Sender: FDA-Public Use
  Company Number: DE-ELI_LILLY_AND_COMPANY-DE202205004352

PATIENT
  Age: 40 Year
  Sex: Male

DRUGS (6)
  1. ZYPADHERA [Suspect]
     Active Substance: OLANZAPINE PAMOATE
     Indication: Schizophrenia
     Dosage: 405 MG, OTHER (ONCE EVERY THREE MONTH)
     Route: 030
  2. ZYPADHERA [Suspect]
     Active Substance: OLANZAPINE PAMOATE
     Indication: Schizophrenia
     Dosage: 405 MG, OTHER (ONCE EVERY THREE MONTH)
     Route: 030
  3. ZYPADHERA [Suspect]
     Active Substance: OLANZAPINE PAMOATE
     Indication: Schizophrenia
     Dosage: 405 MG, OTHER (ONCE EVERY THREE MONTH)
     Route: 030
  4. ZYPADHERA [Suspect]
     Active Substance: OLANZAPINE PAMOATE
     Dosage: 405 MG, OTHER (ONCE EVERY THREE MONTH)
     Route: 030
     Dates: start: 20220502
  5. ZYPADHERA [Suspect]
     Active Substance: OLANZAPINE PAMOATE
     Dosage: 405 MG, OTHER (ONCE EVERY THREE MONTH)
     Route: 030
     Dates: start: 20220502
  6. ZYPADHERA [Suspect]
     Active Substance: OLANZAPINE PAMOATE
     Dosage: 405 MG, OTHER (ONCE EVERY THREE MONTH)
     Route: 030
     Dates: start: 20220502

REACTIONS (8)
  - Restlessness [Recovered/Resolved]
  - Blood pressure increased [Recovered/Resolved]
  - Heart rate increased [Recovered/Resolved]
  - Hypotension [Recovered/Resolved]
  - Post-injection delirium sedation syndrome [Recovered/Resolved]
  - Sedation [Recovered/Resolved]
  - Asthenia [Recovered/Resolved]
  - Inappropriate schedule of product administration [Unknown]

NARRATIVE: CASE EVENT DATE: 20220501
